FAERS Safety Report 10168515 (Version 1)
Quarter: 2014Q2

REPORT INFORMATION
  Report Type: Spontaneous
  Country: FR (occurrence: FR)
  Receive Date: 20140513
  Receipt Date: 20140513
  Transmission Date: 20141212
  Serious: Yes (Hospitalization)
  Sender: FDA-Public Use
  Company Number: FR-PFIZER INC-2014125933

PATIENT
  Age: 70 Year
  Sex: Female

DRUGS (4)
  1. SALAZOPYRINE [Suspect]
     Indication: RHEUMATOID ARTHRITIS
     Dosage: 2G (4 DF OF 500 MG)
     Route: 048
     Dates: start: 2009, end: 20140408
  2. OROCAL D3 [Concomitant]
  3. DELURSAN [Concomitant]
  4. CORTANCYL [Concomitant]

REACTIONS (2)
  - Axonal neuropathy [Not Recovered/Not Resolved]
  - Drug effect incomplete [Not Recovered/Not Resolved]
